FAERS Safety Report 20893123 (Version 1)
Quarter: 2022Q2

REPORT INFORMATION
  Report Type: Spontaneous
  Country: US (occurrence: US)
  Receive Date: 20220531
  Receipt Date: 20220531
  Transmission Date: 20220721
  Serious: No
  Sender: FDA-Public Use
  Company Number: US-AIMMUNE THERAPEUTICS, INC.-2022AIMT00415

PATIENT

DRUGS (2)
  1. PALFORZIA [Suspect]
     Active Substance: PEANUT
     Indication: Food allergy
     Dosage: 200 MG, 1X/DAY
     Route: 048
     Dates: start: 202205
  2. PALFORZIA [Suspect]
     Active Substance: PEANUT
     Dosage: 160 MG, 1X/DAY, DOSE DECREASED
     Route: 048

REACTIONS (3)
  - Adverse drug reaction [Unknown]
  - Nasal pruritus [Unknown]
  - Rhinorrhoea [Unknown]
